FAERS Safety Report 7101988-0 (Version None)
Quarter: 2010Q4

REPORT INFORMATION
  Report Type: 
  Country: None (occurrence: None)
  Receive Date: 20101115
  Receipt Date: 20101103
  Transmission Date: 20110411
  Serious: Yes (Hospitalization, Other)
  Sender: FDA-Public Use
  Company Number: US-ELI_LILLY_AND_COMPANY-US201011001070

PATIENT
  Sex: Female
  Weight: 93.878 kg

DRUGS (18)
  1. BYETTA [Suspect]
     Indication: TYPE 2 DIABETES MELLITUS
     Dosage: 5 UG, 2/D
     Route: 058
  2. BYETTA [Suspect]
     Dosage: 10 UG, 2/D
     Route: 058
  3. OXYCODONE AND ACETAMINOPHEN [Concomitant]
     Indication: PAIN
     Dosage: UNK, AS NEEDED
     Route: 048
  4. LEVOTHYROXINE [Concomitant]
     Indication: HYPOTHYROIDISM
     Dosage: 0.05 MG, DAILY (1/D)
     Route: 048
  5. CYCLOBENZAPRINE [Concomitant]
     Indication: MUSCLE SPASMS
     Dosage: 10 MG, 3/D
     Route: 048
  6. FUROSEMIDE [Concomitant]
     Indication: OEDEMA
     Dosage: 40 MG, DAILY (1/D)
     Route: 048
  7. REQUIP [Concomitant]
     Indication: RESTLESS LEGS SYNDROME
     Dosage: 4 MG, EACH EVENING
     Route: 048
  8. LISINOPRIL [Concomitant]
     Indication: HYPERTENSION
     Dosage: 5 MG, DAILY (1/D)
     Route: 048
  9. METOPROLOL TARTRATE [Concomitant]
     Indication: HYPERTENSION
     Dosage: 25 MG, 2/D
     Route: 048
  10. GABAPENTIN [Concomitant]
     Indication: DIABETIC NEUROPATHY
     Dosage: 1200 MG, 3/D
     Route: 048
  11. METROGEL [Concomitant]
     Indication: ROSACEA
     Dosage: UNK, 2/D
     Route: 061
  12. NIZORAL [Concomitant]
     Indication: FUNGAL SKIN INFECTION
     Dosage: UNK, AS NEEDED
     Route: 061
  13. ERYTHROMYCIN [Concomitant]
     Indication: ROSACEA
     Dosage: 750 MG, 2/D
     Route: 048
  14. ZOLPIDEM [Concomitant]
     Indication: INSOMNIA
     Dosage: 10 MG, EACH EVENING
     Route: 048
  15. SIMVASTATIN [Concomitant]
     Indication: BLOOD CHOLESTEROL INCREASED
     Dosage: 80 MG, EACH EVENING
     Route: 048
  16. POTASSIUM CHLORIDE [Concomitant]
     Indication: ELECTROLYTE SUBSTITUTION THERAPY
     Dosage: 20 MEQ, EACH MORNING
     Route: 048
  17. FLONASE [Concomitant]
     Indication: PRODUCT USED FOR UNKNOWN INDICATION
     Dosage: UNK, 2/D
     Route: 045
  18. KEPPRA [Concomitant]
     Indication: CONVULSION
     Dates: end: 20101020

REACTIONS (24)
  - ABDOMINAL PAIN [None]
  - ABDOMINAL PAIN LOWER [None]
  - ANAEMIA [None]
  - BLOOD GLUCOSE DECREASED [None]
  - BLOOD GLUCOSE INCREASED [None]
  - BODY TEMPERATURE INCREASED [None]
  - COMPLEX PARTIAL SEIZURES [None]
  - CONVULSION [None]
  - FALL [None]
  - GRAND MAL CONVULSION [None]
  - HEAD INJURY [None]
  - HEADACHE [None]
  - HYPOGLYCAEMIC UNCONSCIOUSNESS [None]
  - HYSTERECTOMY [None]
  - LOSS OF CONSCIOUSNESS [None]
  - MALAISE [None]
  - OFF LABEL USE [None]
  - PAIN [None]
  - PERIORBITAL HAEMATOMA [None]
  - PYREXIA [None]
  - SEROMA [None]
  - THROMBOSIS [None]
  - VIRAL INFECTION [None]
  - WEIGHT DECREASED [None]
